FAERS Safety Report 4589281-1 (Version None)
Quarter: 2005Q1

REPORT INFORMATION
  Report Type: 
  Country: None (occurrence: None)
  Receive Date: 20050217
  Receipt Date: 20050217
  Transmission Date: 20050727
  Serious: Yes (Other)
  Sender: FDA-Public Use
  Company Number: None

PATIENT

DRUGS (1)
  1. APLISOL [Suspect]
     Indication: TUBERCULIN TEST POSITIVE
     Dosage: 5 TU 0.1 ML ONCE INTRADERMAL
     Route: 023
     Dates: start: 20050203, end: 20050212

REACTIONS (1)
  - TUBERCULIN TEST POSITIVE [None]
